FAERS Safety Report 7599252-9 (Version None)
Quarter: 2011Q3

REPORT INFORMATION
  Report Type: 
  Country: None (occurrence: None)
  Receive Date: 20110711
  Receipt Date: 20110705
  Transmission Date: 20111222
  Serious: Yes (Other)
  Sender: FDA-Public Use
  Company Number: JP-BAYER-2011-058936

PATIENT
  Age: 78 Year
  Sex: Male
  Weight: 40 kg

DRUGS (4)
  1. ZOMETA [Concomitant]
     Indication: METASTASES TO BONE
     Dosage: DAILY DOSE 4 MG
     Route: 041
     Dates: start: 20110608, end: 20110608
  2. MUCOSTA [Concomitant]
     Indication: GASTRITIS PROPHYLAXIS
     Dosage: DAILY DOSE 200 MG
     Route: 048
     Dates: start: 20110607
  3. NEXAVAR [Suspect]
     Indication: RENAL CELL CARCINOMA
     Dosage: DAILY DOSE 800 MG
     Route: 048
     Dates: start: 20110615, end: 20110627
  4. CELECOXIB [Concomitant]
     Indication: ANALGESIC THERAPY
     Dosage: DAILY DOSE 200 MG
     Route: 048
     Dates: start: 20110607

REACTIONS (1)
  - ERYTHEMA MULTIFORME [None]
